FAERS Safety Report 4919837-5 (Version None)
Quarter: 2006Q1

REPORT INFORMATION
  Report Type: 
  Country: None (occurrence: None)
  Receive Date: 20060221
  Receipt Date: 20060221
  Transmission Date: 20060701
  Serious: Yes (Hospitalization, Other)
  Sender: FDA-Public Use
  Company Number: None

PATIENT
  Sex: Male
  Weight: 63.18 kg

DRUGS (1)
  1. FLUOROURACIL [Suspect]
     Indication: GASTRIC CANCER
     Dosage: 5418 M G
     Dates: start: 20060124, end: 20060214

REACTIONS (1)
  - METASTASES TO LUNG [None]
